FAERS Safety Report 7608125-4 (Version None)
Quarter: 2011Q3

REPORT INFORMATION
  Report Type: 
  Country: None (occurrence: None)
  Receive Date: 20110706
  Receipt Date: 20110621
  Transmission Date: 20111222
  Serious: Yes (Other)
  Sender: FDA-Public Use
  Company Number: 2011SP028999

PATIENT
  Sex: Female

DRUGS (1)
  1. DULERA ORAL INHALATION [Suspect]
     Indication: PRODUCT USED FOR UNKNOWN INDICATION
     Dosage: INH
     Route: 055

REACTIONS (4)
  - FEELING ABNORMAL [None]
  - SWELLING FACE [None]
  - EYE SWELLING [None]
  - OEDEMA MOUTH [None]
